FAERS Safety Report 5786271-8 (Version None)
Quarter: 2008Q2

REPORT INFORMATION
  Report Type: 
  Country: None (occurrence: None)
  Receive Date: 20080624
  Receipt Date: 20070809
  Transmission Date: 20081010
  Serious: No
  Sender: FDA-Public Use
  Company Number: US-ASTRAZENECA-2007UW19267

PATIENT
  Age: 55 Year
  Sex: Male

DRUGS (3)
  1. PULMICORT FLEXHALER [Suspect]
     Indication: ASTHMA
     Route: 055
     Dates: start: 20070701
  2. PULMICORT FLEXHALER [Suspect]
     Indication: ILL-DEFINED DISORDER
     Route: 055
     Dates: start: 20070701
  3. SINGULAIR [Concomitant]

REACTIONS (1)
  - CHEST PAIN [None]
